FAERS Safety Report 20968547 (Version 1)
Quarter: 2022Q2

REPORT INFORMATION
  Report Type: Spontaneous
  Country: CN (occurrence: CN)
  Receive Date: 20220616
  Receipt Date: 20220616
  Transmission Date: 20220721
  Serious: Yes (Hospitalization, Other)
  Sender: FDA-Public Use
  Company Number: None

PATIENT
  Age: 36 Year
  Sex: Female
  Weight: 46 kg

DRUGS (4)
  1. CYCLOPHOSPHAMIDE [Suspect]
     Active Substance: CYCLOPHOSPHAMIDE
     Indication: Breast cancer female
     Dosage: 900 MG, QD, D1, POWDER INJECTION (0.9% SODIUM CHLORIDE INJECTION 100ML + CYCLOPHOSPHAMIDE FOR INJECT
     Route: 041
     Dates: start: 20220528, end: 20220528
  2. SODIUM CHLORIDE [Suspect]
     Active Substance: SODIUM CHLORIDE
     Indication: Medication dilution
     Dosage: 100 ML, QD, D1 (0.9% SODIUM CHLORIDE INJECTION 100ML + CYCLOPHOSPHAMIDE FOR INJECTION 900 MG)
     Route: 041
  3. ANHYDROUS DEXTROSE [Suspect]
     Active Substance: ANHYDROUS DEXTROSE
     Indication: Medication dilution
     Dosage: 100 ML, QD, D1 (5% GLUCOSE INJECTION 100ML + PIRARUBICIN HYDROCHLORIDE FOR INJECTION 90 MG)
     Route: 041
  4. PIRARUBICIN HYDROCHLORIDE [Suspect]
     Active Substance: PIRARUBICIN HYDROCHLORIDE
     Indication: Breast cancer female
     Dosage: 90 MG, QD, D1
     Route: 041
     Dates: start: 20220528, end: 20220528

REACTIONS (1)
  - Myelosuppression [Recovered/Resolved]

NARRATIVE: CASE EVENT DATE: 20220605
